FAERS Safety Report 9104401 (Version 1)
Quarter: 2013Q1

REPORT INFORMATION
  Report Type: Spontaneous
  Country: US (occurrence: FR)
  Receive Date: 20130219
  Receipt Date: 20130219
  Transmission Date: 20140127
  Serious: Yes (Life-Threatening, Hospitalization)
  Sender: FDA-Public Use
  Company Number: 2013SP002358

PATIENT
  Age: 59 Year
  Sex: Male

DRUGS (10)
  1. FLUOROURACIL [Suspect]
     Indication: ORAL NEOPLASM
     Route: 041
     Dates: start: 20121203, end: 20121208
  2. CISPLATIN [Suspect]
     Indication: ORAL NEOPLASM
     Route: 041
     Dates: start: 20121203, end: 20121203
  3. ONDANSETRON HCL [Suspect]
     Indication: PRODUCT USED FOR UNKNOWN INDICATION
     Route: 042
     Dates: start: 20121203, end: 20121203
  4. TAXOTERE [Suspect]
     Indication: ORAL NEOPLASM
     Route: 041
     Dates: start: 20121203, end: 20121203
  5. LYRICA [Suspect]
     Indication: PAIN
     Route: 048
     Dates: start: 20121203, end: 20121215
  6. APREPITANT [Suspect]
     Indication: PRODUCT USED FOR UNKNOWN INDICATION
     Route: 048
     Dates: start: 20121203, end: 20121203
  7. DEXAMETHASONE [Suspect]
     Indication: PRODUCT USED FOR UNKNOWN INDICATION
     Route: 042
     Dates: start: 20121203, end: 20121203
  8. MORPHINE SULFATE [Suspect]
     Indication: PAIN
     Route: 048
     Dates: start: 20121203, end: 20121215
  9. MORPHINE SULFATE [Suspect]
     Indication: PAIN
     Route: 048
     Dates: start: 20121203, end: 20121215
  10. MORPHINE SULFATE [Suspect]
     Indication: PAIN
     Route: 048
     Dates: start: 20121203, end: 20121215

REACTIONS (9)
  - Septic shock [Not Recovered/Not Resolved]
  - Lung disorder [Not Recovered/Not Resolved]
  - Renal failure acute [Not Recovered/Not Resolved]
  - Hepatocellular injury [Recovered/Resolved]
  - Diarrhoea [Recovered/Resolved]
  - Asthenia [Unknown]
  - Decreased appetite [Unknown]
  - Vomiting [Recovered/Resolved]
  - Acute respiratory distress syndrome [Recovered/Resolved]
